FAERS Safety Report 8082424-7 (Version None)
Quarter: 2012Q1

REPORT INFORMATION
  Report Type: 
  Country: None (occurrence: None)
  Receive Date: 20120127
  Receipt Date: 20110218
  Transmission Date: 20120608
  Serious: No
  Sender: FDA-Public Use
  Company Number: US-ABBOTT-11P-163-0706361-00

PATIENT
  Age: 38 Year
  Sex: Male

DRUGS (4)
  1. HUMIRA [Suspect]
     Indication: CROHN'S DISEASE
     Dates: start: 20101001
  2. LAMICTAL [Concomitant]
     Indication: EPILEPSY
     Dosage: 200MG - 2 TABS BID
  3. AZATHIOPRINE [Concomitant]
     Indication: CROHN'S DISEASE
     Dosage: 50MG DAILY
  4. KEPPRA [Concomitant]
     Indication: EPILEPSY

REACTIONS (5)
  - PYREXIA [None]
  - DIARRHOEA [None]
  - NASOPHARYNGITIS [None]
  - COUGH [None]
  - INFLUENZA [None]
